FAERS Safety Report 9786628 (Version 1)
Quarter: 2013Q4

REPORT INFORMATION
  Report Type: Spontaneous
  Country: IT (occurrence: IT)
  Receive Date: 20131227
  Receipt Date: 20131227
  Transmission Date: 20140711
  Serious: Yes (Hospitalization)
  Sender: FDA-Public Use
  Company Number: PHHY2013IT150661

PATIENT
  Sex: Female

DRUGS (1)
  1. LORAZEPAM [Suspect]
     Dosage: 10 MG, ONCE/SINGLE
     Route: 048
     Dates: start: 20130528, end: 20130528

REACTIONS (1)
  - Sopor [Recovered/Resolved]
